FAERS Safety Report 9248698 (Version 3)
Quarter: 2013Q3

REPORT INFORMATION
  Report Type: Spontaneous
  Country: US (occurrence: US)
  Receive Date: 20130423
  Receipt Date: 20130704
  Transmission Date: 20140515
  Serious: Yes (Death, Hospitalization, Other)
  Sender: FDA-Public Use
  Company Number: US-MERCK-1304USA012989

PATIENT
  Age: 53 Year
  Sex: Female
  Weight: 82.54 kg

DRUGS (10)
  1. ISENTRESS [Suspect]
     Indication: HIV INFECTION
     Dosage: 400 MG, BID
     Route: 048
     Dates: start: 2009
  2. ZIAGEN [Concomitant]
     Dosage: 300 MG, BID
     Route: 048
     Dates: start: 20120130
  3. PREZISTA [Concomitant]
     Dosage: 600 MG, BID
     Route: 048
     Dates: start: 20120319
  4. TRUVADA [Concomitant]
     Dosage: 1 DF, QD
     Route: 048
     Dates: start: 20120319
  5. ZESTORETIC [Concomitant]
     Dosage: 1 DF, QD
     Route: 048
     Dates: start: 20120913
  6. PHENERGAN (PROMETHAZINE HYDROCHLORIDE) [Concomitant]
     Dosage: 25 MG, Q8H
     Route: 048
     Dates: start: 20120607
  7. NORVIR [Concomitant]
     Dosage: 100 MG, BID
     Route: 048
     Dates: start: 20120130
  8. ZOLOFT [Concomitant]
     Dosage: 50 MG, QD
     Route: 048
     Dates: start: 20120913
  9. BACTRIM DS [Concomitant]
     Dosage: 1 DF, ONCE
     Route: 048
     Dates: start: 20120913
  10. ULTRAM [Concomitant]
     Dosage: 50 MG, Q8H
     Route: 048
     Dates: start: 20120913

REACTIONS (12)
  - Multi-organ failure [Fatal]
  - Nausea [Unknown]
  - Depression [Unknown]
  - Cerebrovascular accident [Unknown]
  - Renal failure acute [Unknown]
  - Metabolic acidosis [Unknown]
  - Anaemia [Unknown]
  - Sepsis [Unknown]
  - Pancreatitis [Unknown]
  - Disseminated intravascular coagulation [Unknown]
  - Hepatitis cholestatic [Unknown]
  - Hypertension [Unknown]
